FAERS Safety Report 10949322 (Version 1)
Quarter: 2015Q1

REPORT INFORMATION
  Report Type: Spontaneous
  Country: US (occurrence: None)
  Receive Date: 20150323
  Receipt Date: 20150323
  Transmission Date: 20150721
  Serious: Yes (Other)
  Sender: FDA-Public Use
  Company Number: None

PATIENT
  Age: 9 Year
  Sex: Male
  Weight: 22.68 kg

DRUGS (1)
  1. POLYETHYLENE GLYCOL 3350. [Suspect]
     Active Substance: POLYETHYLENE GLYCOL 3350
     Indication: CONSTIPATION
     Route: 048
     Dates: start: 20150130, end: 20150312

REACTIONS (13)
  - Distractibility [None]
  - Compulsive handwashing [None]
  - Decreased interest [None]
  - Fear [None]
  - Skin fissures [None]
  - Dysphagia [None]
  - Abnormal behaviour [None]
  - Anger [None]
  - Obsessive-compulsive disorder [None]
  - Restlessness [None]
  - Feeling abnormal [None]
  - Insomnia [None]
  - Anxiety [None]

NARRATIVE: CASE EVENT DATE: 20150130
